FAERS Safety Report 4284573-8 (Version None)
Quarter: 2004Q1

REPORT INFORMATION
  Report Type: 
  Country: None (occurrence: None)
  Receive Date: 20040130
  Receipt Date: 20040122
  Transmission Date: 20041129
  Serious: Yes (Hospitalization)
  Sender: FDA-Public Use
  Company Number: 200410268FR

PATIENT
  Age: 9 Year
  Sex: Female
  Weight: 40 kg

DRUGS (4)
  1. FUROSEMIDE [Suspect]
     Dosage: 10 MG PO
     Route: 048
     Dates: start: 20030123
  2. RAMIPRIL [Suspect]
     Dosage: 5 MG/DAY PO
     Route: 048
  3. NIFEDIPINE (CHRONADALATE) COATED TABLETS [Suspect]
     Dosage: 30 MG/DAY PO
     Route: 048
  4. RIVASTIGMINE TARTRATE (EXELON) CAPSULES [Suspect]
     Indication: DEMENTIA ALZHEIMER'S TYPE
     Dosage: 4.5 MG/DAY PO
     Route: 048

REACTIONS (5)
  - ATRIAL FIBRILLATION [None]
  - DISORIENTATION [None]
  - FALL [None]
  - HUMERUS FRACTURE [None]
  - LOSS OF CONSCIOUSNESS [None]
